FAERS Safety Report 9291572 (Version 1)
Quarter: 2013Q2

REPORT INFORMATION
  Report Type: Spontaneous
  Country: FR (occurrence: FR)
  Receive Date: 20130515
  Receipt Date: 20130515
  Transmission Date: 20140414
  Serious: Yes (Other)
  Sender: FDA-Public Use
  Company Number: FR-GLAXOSMITHKLINE-B0889741A

PATIENT
  Age: 60 Year
  Sex: Female

DRUGS (6)
  1. AZANTAC [Suspect]
     Indication: PREMEDICATION
     Dosage: 50MG SINGLE DOSE
     Route: 042
     Dates: start: 20130404, end: 20130404
  2. ZOPHREN [Concomitant]
     Indication: PREMEDICATION
     Dosage: 8MG CYCLIC
     Route: 042
  3. TAXOL [Concomitant]
     Indication: OVARIAN CANCER METASTATIC
  4. CARBOPLATINE [Concomitant]
     Indication: OVARIAN CANCER METASTATIC
  5. METHYLPREDNISOLONE [Concomitant]
     Indication: PREMEDICATION
     Dosage: 120MG CYCLIC
     Route: 042
  6. POLARAMINE [Concomitant]
     Indication: PREMEDICATION
     Dosage: 5MG CYCLIC
     Route: 042

REACTIONS (5)
  - Anaphylactoid reaction [Recovered/Resolved]
  - Erythema [Recovered/Resolved]
  - Malaise [Recovered/Resolved]
  - Pharyngeal oedema [Recovered/Resolved]
  - Suffocation feeling [Recovered/Resolved]
